FAERS Safety Report 20697466 (Version 1)
Quarter: 2022Q2

REPORT INFORMATION
  Report Type: Spontaneous
  Country: US (occurrence: US)
  Receive Date: 20220411
  Receipt Date: 20220411
  Transmission Date: 20220721
  Serious: No
  Sender: FDA-Public Use
  Company Number: US-PFIZER INC-2021775635

PATIENT
  Age: 90 Year
  Sex: Female

DRUGS (2)
  1. LATANOPROST [Suspect]
     Active Substance: LATANOPROST
     Dosage: ONE DROP EACH EYE NIGHTLY
     Route: 047
  2. LATANOPROST [Suspect]
     Active Substance: LATANOPROST
     Dosage: ONE DROP EACH EYE NIGHTLY
     Route: 047

REACTIONS (5)
  - Product complaint [Unknown]
  - Eye swelling [Unknown]
  - Vision blurred [Unknown]
  - Eye pruritus [Unknown]
  - Lacrimation increased [Unknown]
